FAERS Safety Report 16977127 (Version 1)
Quarter: 2019Q4

REPORT INFORMATION
  Report Type: Spontaneous
  Country: RU (occurrence: RU)
  Receive Date: 20191030
  Receipt Date: 20191030
  Transmission Date: 20200122
  Serious: Yes (Disabling)
  Sender: FDA-Public Use
  Company Number: RU-B.I. PHARMACEUTICALS,INC./RIDGEFIELD-2019-BI-109763

PATIENT
  Age: 76 Year
  Sex: Female
  Weight: 70 kg

DRUGS (2)
  1. GILOTRIF [Suspect]
     Active Substance: AFATINIB
     Indication: EGFR GENE MUTATION
     Route: 048
     Dates: start: 201909, end: 201909
  2. GILOTRIF [Suspect]
     Active Substance: AFATINIB
     Indication: NON-SMALL CELL LUNG CANCER
     Route: 048
     Dates: start: 201908, end: 201909

REACTIONS (2)
  - Pruritus genital [Recovered/Resolved]
  - Genital rash [Recovered/Resolved]

NARRATIVE: CASE EVENT DATE: 201908
